FAERS Safety Report 21634739 (Version 1)
Quarter: 2022Q4

REPORT INFORMATION
  Report Type: Spontaneous
  Country: US (occurrence: None)
  Receive Date: 20221123
  Receipt Date: 20221123
  Transmission Date: 20230112
  Serious: No
  Sender: FDA-Public Use
  Company Number: None

PATIENT
  Age: 68 Year
  Sex: Male

DRUGS (1)
  1. TRULICITY [Suspect]
     Active Substance: DULAGLUTIDE
     Indication: Type 2 diabetes mellitus
     Dosage: OTHER FREQUENCY : WEEKLY;?
     Route: 058
     Dates: start: 20220901, end: 20221113

REACTIONS (5)
  - Pruritus [None]
  - Urticaria [None]
  - Haemorrhage [None]
  - Injury [None]
  - Scratch [None]

NARRATIVE: CASE EVENT DATE: 20221123
